FAERS Safety Report 8131721-5 (Version None)
Quarter: 2012Q1

REPORT INFORMATION
  Report Type: 
  Country: None (occurrence: None)
  Receive Date: 20120213
  Receipt Date: 20120204
  Transmission Date: 20120608
  Serious: Yes (Hospitalization)
  Sender: FDA-Public Use
  Company Number: US-ASTELLAS-2012US000250

PATIENT
  Sex: Male
  Weight: 87 kg

DRUGS (5)
  1. PROGRAF [Suspect]
     Indication: RENAL TRANSPLANT
     Dosage: 2 MG, BID
     Route: 048
     Dates: start: 20040204
  2. MYCOPHENOLATE MOFETIL (CELLCEPT) [Concomitant]
     Indication: RENAL TRANSPLANT
     Dosage: 1000 MG, BID
     Route: 048
     Dates: start: 20040204
  3. MAGNESIUM [Concomitant]
     Indication: MAGNESIUM DEFICIENCY
     Dosage: 800 MG, UID/QD
     Route: 048
     Dates: start: 20040204
  4. COREG [Concomitant]
     Indication: BLOOD PRESSURE
     Dosage: 25 MG, BID
     Route: 048
     Dates: start: 20050101
  5. SIMVASTATIN [Concomitant]
     Indication: BLOOD CHOLESTEROL
     Dosage: 40 MG, UID/QD
     Route: 048
     Dates: start: 20100101

REACTIONS (1)
  - CHOLELITHIASIS [None]
